FAERS Safety Report 6321675-6 (Version None)
Quarter: 2009Q3

REPORT INFORMATION
  Report Type: 
  Country: None (occurrence: None)
  Receive Date: 20090821
  Receipt Date: 20090821
  Transmission Date: 20100115
  Serious: Yes (Life-Threatening, Hospitalization)
  Sender: FDA-Public Use
  Company Number: None

PATIENT
  Sex: Female
  Weight: 68.0396 kg

DRUGS (3)
  1. CYMBALTA [Suspect]
     Indication: DEPRESSION
     Dosage: 30MG 1/DAY 3DAYS ORAL 047
     Route: 048
     Dates: start: 20090727
  2. CYMBALTA [Suspect]
     Indication: DEPRESSION
     Dosage: 30MG 1/DAY 3DAYS ORAL 047
     Route: 048
     Dates: start: 20090728
  3. CYMBALTA [Suspect]
     Indication: DEPRESSION
     Dosage: 30MG 1/DAY 3DAYS ORAL 047
     Route: 048
     Dates: start: 20090729

REACTIONS (4)
  - DISSOCIATION [None]
  - MULTIPLE DRUG OVERDOSE INTENTIONAL [None]
  - SUICIDE ATTEMPT [None]
  - UNRESPONSIVE TO STIMULI [None]
